FAERS Safety Report 25894445 (Version 1)
Quarter: 2025Q4

REPORT INFORMATION
  Report Type: Spontaneous
  Country: US (occurrence: US)
  Receive Date: 20251008
  Receipt Date: 20251008
  Transmission Date: 20260119
  Serious: Yes (Hospitalization)
  Sender: ROCHE
  Company Number: US-ROCHE-10000402179

PATIENT
  Age: 62 Year
  Sex: Male

DRUGS (6)
  1. COTELLIC [Suspect]
     Active Substance: COBIMETINIB FUMARATE
     Indication: Prostate cancer
     Route: 048
  2. COTELLIC [Suspect]
     Active Substance: COBIMETINIB FUMARATE
     Indication: Skin cancer
  3. COTELLIC [Suspect]
     Active Substance: COBIMETINIB FUMARATE
     Indication: Metastases to reproductive organ
  4. ZELBORAF [Suspect]
     Active Substance: VEMURAFENIB
     Indication: Prostate cancer
     Route: 065
  5. ZELBORAF [Suspect]
     Active Substance: VEMURAFENIB
     Indication: Skin cancer
  6. ZELBORAF [Suspect]
     Active Substance: VEMURAFENIB
     Indication: Metastases to reproductive organ

REACTIONS (3)
  - Hypotension [Unknown]
  - Heart rate decreased [Unknown]
  - Seizure [Unknown]

NARRATIVE: CASE EVENT DATE: 20250924
